FAERS Safety Report 6261129-9 (Version None)
Quarter: 2009Q3

REPORT INFORMATION
  Report Type: 
  Country: None (occurrence: None)
  Receive Date: 20090709
  Receipt Date: 20090217
  Transmission Date: 20100115
  Serious: No
  Sender: FDA-Public Use
  Company Number: US-KINGPHARMUSA00001-K200900162

PATIENT
  Age: 39 Year
  Sex: Female

DRUGS (2)
  1. LEVOXYL [Suspect]
     Indication: BLOOD THYROID STIMULATING HORMONE INCREASED
     Dosage: 12.5 MCG, QD
     Route: 048
     Dates: start: 20090214, end: 20090217
  2. METOPROLOL [Concomitant]
     Indication: HEART RATE IRREGULAR
     Dosage: UNK
     Route: 048

REACTIONS (5)
  - CHEST DISCOMFORT [None]
  - DIZZINESS [None]
  - LOCAL SWELLING [None]
  - PRURITUS [None]
  - SWELLING FACE [None]
